FAERS Safety Report 4885768-2 (Version None)
Quarter: 2006Q1

REPORT INFORMATION
  Report Type: 
  Country: None (occurrence: None)
  Receive Date: 20060117
  Receipt Date: 20060103
  Transmission Date: 20060701
  Serious: Yes (Life-Threatening, Hospitalization)
  Sender: FDA-Public Use
  Company Number: 2006002778

PATIENT
  Age: 37 Year
  Sex: Female

DRUGS (8)
  1. NEURONTIN [Suspect]
     Indication: ARTHRALGIA
     Dosage: 900 MG (300 MG 3 IN 1D) ORAL
     Route: 048
     Dates: start: 20051116, end: 20051202
  2. IMURAN [Concomitant]
  3. AMBENONIUM CHLORIDE (AMBENONIUM CHLORIDE) [Concomitant]
  4. PREDNISOLONE [Concomitant]
  5. MIDODRINE HYDROCHLORIDE (MIDODRINE HYDROCHLORIDE) [Concomitant]
  6. PYRIDOXINE HCL [Concomitant]
  7. PAROXETINE (PAROXETINE) [Concomitant]
  8. MESTINON [Concomitant]

REACTIONS (4)
  - DYSPNOEA [None]
  - FATIGUE [None]
  - MUSCULAR WEAKNESS [None]
  - RESPIRATORY ARREST [None]
